FAERS Safety Report 16833064 (Version 1)
Quarter: 2019Q3

REPORT INFORMATION
  Report Type: Spontaneous
  Country: ES (occurrence: ES)
  Receive Date: 20190920
  Receipt Date: 20190920
  Transmission Date: 20191005
  Serious: Yes (Other)
  Sender: FDA-Public Use
  Company Number: ES-TEVA-2019-ES-1110198

PATIENT
  Age: 4 Month
  Sex: Male
  Weight: 8.1 kg

DRUGS (2)
  1. MINOXIDIL. [Suspect]
     Active Substance: MINOXIDIL
     Dosage: EL PRODUCTO CON INGREDIENTE ACTIVO EQUIVOCADO . LA F?RMULA MAGISTRAL OMEPRAZOL QUE SE ESTABA ADMINIS
     Dates: start: 20190521, end: 20190607
  2. OP2455 - OMEPRAZOL F?RMULA MAGISTRAL [Suspect]
     Active Substance: OMEPRAZOLE
     Indication: GASTROOESOPHAGEAL REFLUX DISEASE
     Dosage: LA F?RMULA MAGISTRAL : OMEPRAZOL 3,5 MG/ML SUSPENSION ORAL CPS40 ML LOTE AFECTADO POR ALERTA FARMACE
     Dates: start: 20190521, end: 20190607

REACTIONS (2)
  - Hypertrichosis [Recovering/Resolving]
  - Product formulation issue [Recovered/Resolved]

NARRATIVE: CASE EVENT DATE: 20190521
